FAERS Safety Report 10270745 (Version 1)
Quarter: 2014Q3

REPORT INFORMATION
  Report Type: Spontaneous
  Country: US (occurrence: US)
  Receive Date: 20140701
  Receipt Date: 20140701
  Transmission Date: 20150326
  Serious: No
  Sender: FDA-Public Use
  Company Number: US-PFIZER INC-2014178557

PATIENT
  Sex: Female

DRUGS (1)
  1. LYRICA [Suspect]
     Active Substance: PREGABALIN
     Indication: PAIN
     Dosage: UNK

REACTIONS (9)
  - Weight increased [Unknown]
  - Drug ineffective [Unknown]
  - Joint swelling [Unknown]
  - Peripheral swelling [Unknown]
  - Dry mouth [Unknown]
  - Vision blurred [Unknown]
  - Dyspnoea [Unknown]
  - Sleep disorder [Unknown]
  - Hyperhidrosis [Unknown]
